FAERS Safety Report 19589474 (Version 3)
Quarter: 2025Q3

REPORT INFORMATION
  Report Type: Spontaneous
  Country: EU (occurrence: EU)
  Receive Date: 20210721
  Receipt Date: 20250915
  Transmission Date: 20251021
  Serious: Yes (Hospitalization, Other)
  Sender: MYLAN
  Company Number: None

PATIENT
  Age: 26 Year
  Sex: Female
  Weight: 48 kg

DRUGS (8)
  1. FINGOLIMOD [Suspect]
     Active Substance: FINGOLIMOD
     Indication: Multiple sclerosis relapse
  2. FINGOLIMOD [Suspect]
     Active Substance: FINGOLIMOD
  3. FINGOLIMOD [Suspect]
     Active Substance: FINGOLIMOD
     Route: 065
  4. FINGOLIMOD [Suspect]
     Active Substance: FINGOLIMOD
     Route: 065
  5. FINGOLIMOD [Suspect]
     Active Substance: FINGOLIMOD
  6. FINGOLIMOD [Suspect]
     Active Substance: FINGOLIMOD
  7. FINGOLIMOD [Suspect]
     Active Substance: FINGOLIMOD
     Route: 065
  8. FINGOLIMOD [Suspect]
     Active Substance: FINGOLIMOD
     Route: 065

REACTIONS (33)
  - Immune reconstitution inflammatory syndrome [Recovered/Resolved]
  - Cerebral infarction [Unknown]
  - Nervous system disorder [Unknown]
  - Sensory loss [Recovered/Resolved]
  - Language disorder [Recovered/Resolved]
  - Cognitive disorder [Recovered/Resolved]
  - Visual impairment [Recovered/Resolved]
  - Headache [Recovered/Resolved]
  - Dysarthria [Recovered/Resolved]
  - Multiple sclerosis [Unknown]
  - Facial discomfort [Recovered/Resolved]
  - General physical health deterioration [Recovered/Resolved]
  - Dysphagia [Recovered/Resolved]
  - Asthenia [Recovered/Resolved]
  - Aphasia [Recovered/Resolved]
  - Demyelination [Unknown]
  - White matter lesion [Unknown]
  - Dysphonia [Unknown]
  - Hemiparesis [Unknown]
  - Areflexia [Unknown]
  - Extensor plantar response [Unknown]
  - Speech disorder [Unknown]
  - Unresponsive to stimuli [Unknown]
  - Rebound effect [Recovering/Resolving]
  - Multiple sclerosis relapse [Unknown]
  - Hemihypoaesthesia [Unknown]
  - Ophthalmoplegia [Unknown]
  - Progressive multifocal leukoencephalopathy [Unknown]
  - Mental status changes [Unknown]
  - Lymphopenia [Unknown]
  - Opportunistic infection [Unknown]
  - Herpes zoster [Unknown]
  - Stomatitis [Unknown]

NARRATIVE: CASE EVENT DATE: 20201001
